FAERS Safety Report 7558231-8 (Version None)
Quarter: 2011Q2

REPORT INFORMATION
  Report Type: 
  Country: None (occurrence: None)
  Receive Date: 20110620
  Receipt Date: 20110609
  Transmission Date: 20111010
  Serious: Yes (Disabling)
  Sender: FDA-Public Use
  Company Number: JP-ASTRAZENECA-2011SE32574

PATIENT
  Age: 68 Year
  Sex: Female
  Weight: 39 kg

DRUGS (7)
  1. DECADRON [Concomitant]
     Indication: OROPHARYNGEAL PAIN
     Route: 048
     Dates: start: 20110313, end: 20110521
  2. GAMOFA [Concomitant]
     Indication: OROPHARYNGEAL PAIN
     Route: 048
     Dates: start: 20110313, end: 20110521
  3. MAGNESIUM SULFATE [Concomitant]
     Indication: OROPHARYNGEAL PAIN
     Route: 048
     Dates: start: 20110313, end: 20110521
  4. IRESSA [Suspect]
     Indication: NON-SMALL CELL LUNG CANCER
     Route: 048
     Dates: start: 20110412, end: 20110520
  5. AGENTS USED FOR COMMON COLD [Concomitant]
     Indication: OROPHARYNGEAL PAIN
     Dosage: DOSE UNKNOWN
     Route: 048
     Dates: start: 20110501
  6. ZOLPIDEM [Concomitant]
     Indication: OROPHARYNGEAL PAIN
     Route: 048
     Dates: start: 20110313, end: 20110521
  7. DEPAKENE [Concomitant]
     Indication: OROPHARYNGEAL PAIN
     Route: 048
     Dates: start: 20110313, end: 20110521

REACTIONS (2)
  - FEBRILE NEUTROPENIA [None]
  - LARYNGITIS [None]
